FAERS Safety Report 6091867-2 (Version None)
Quarter: 2009Q1

REPORT INFORMATION
  Report Type: 
  Country: None (occurrence: None)
  Receive Date: 20090225
  Receipt Date: 20080821
  Transmission Date: 20090719
  Serious: No
  Sender: FDA-Public Use
  Company Number: A0745281A

PATIENT
  Sex: Male

DRUGS (1)
  1. VALTREX [Suspect]
     Indication: DRUG USE FOR UNKNOWN INDICATION
     Dosage: 1G UNKNOWN
     Route: 048

REACTIONS (2)
  - DYSPHAGIA [None]
  - PRODUCT QUALITY ISSUE [None]
